FAERS Safety Report 10913559 (Version 1)
Quarter: 2015Q1

REPORT INFORMATION
  Report Type: Spontaneous
  Country: US (occurrence: None)
  Receive Date: 20150310
  Receipt Date: 20150310
  Transmission Date: 20150721
  Serious: Yes (Hospitalization)
  Sender: FDA-Public Use
  Company Number: None

PATIENT
  Age: 73 Year
  Sex: Male
  Weight: 70.7 kg

DRUGS (2)
  1. VANCOMYCIN [Suspect]
     Active Substance: VANCOMYCIN
     Route: 042
     Dates: start: 20141222, end: 20150116
  2. VANCOMYCIN [Suspect]
     Active Substance: VANCOMYCIN
     Indication: LOWER RESPIRATORY TRACT INFECTION
     Route: 042
     Dates: start: 20141222, end: 20150116

REACTIONS (1)
  - Dermatitis bullous [None]

NARRATIVE: CASE EVENT DATE: 20150111
